FAERS Safety Report 20328982 (Version 96)
Quarter: 2024Q4

REPORT INFORMATION
  Report Type: Report from Study
  Country: CO (occurrence: CO)
  Receive Date: 20220112
  Receipt Date: 20241213
  Transmission Date: 20250115
  Serious: Yes (Hospitalization, Other)
  Sender: TAKEDA
  Company Number: CO-TAKEDA-CO202028268

PATIENT
  Age: 26 Year
  Sex: Male
  Weight: 45 kg

DRUGS (10)
  1. IDURSULFASE [Suspect]
     Active Substance: IDURSULFASE
     Indication: Mucopolysaccharidosis II
     Dosage: 24 MILLIGRAM, 1/WEEK
     Dates: start: 20151028
  2. IDURSULFASE [Suspect]
     Active Substance: IDURSULFASE
     Dosage: 24 GRAM, 1/WEEK
  3. IDURSULFASE [Suspect]
     Active Substance: IDURSULFASE
     Dosage: 24 MILLIGRAM, 1/WEEK
  4. REPLAGAL [Suspect]
     Active Substance: AGALSIDASE ALFA
     Indication: Product used for unknown indication
     Dosage: 24 MILLIGRAM
  5. OXYGEN [Concomitant]
     Active Substance: OXYGEN
     Dosage: UNK
  6. ALBUTEROL [Concomitant]
     Active Substance: ALBUTEROL
     Dosage: UNK, UNK, Q8HR
  7. IPRATROPIUM BROMIDE [Concomitant]
     Active Substance: IPRATROPIUM BROMIDE
     Dosage: UNK, UNK, Q8HR
  8. MONTELUKAST [Concomitant]
     Active Substance: MONTELUKAST
     Dosage: UNK
  9. BUDESONIDE [Concomitant]
     Active Substance: BUDESONIDE
     Dosage: UNK, UNK, QD
  10. FORMOTEROL [Concomitant]
     Active Substance: FORMOTEROL
     Dosage: UNK, UNK, QD

REACTIONS (60)
  - Urinary tract infection [Recovered/Resolved]
  - Left ventricular hypertrophy [Unknown]
  - Aortic valve thickening [Unknown]
  - Pericardial effusion [Unknown]
  - COVID-19 [Unknown]
  - Fascial infection [Unknown]
  - Macroglossia [Unknown]
  - Odynophagia [Unknown]
  - Macrocephaly [Unknown]
  - Alanine aminotransferase increased [Unknown]
  - Aspartate aminotransferase increased [Unknown]
  - Body temperature increased [Unknown]
  - Nose deformity [Unknown]
  - Nasal septum disorder [Unknown]
  - Nasal turbinate hypertrophy [Unknown]
  - Neck deformity [Unknown]
  - Oxygen saturation decreased [Unknown]
  - Limb deformity [Unknown]
  - Hand deformity [Unknown]
  - Gait disturbance [Unknown]
  - Knee deformity [Unknown]
  - Musculoskeletal discomfort [Unknown]
  - Foot deformity [Unknown]
  - Nervous system disorder [Unknown]
  - Breath sounds abnormal [Unknown]
  - Hypoacusis [Unknown]
  - Intervertebral disc disorder [Unknown]
  - Cholelithiasis [Unknown]
  - Weight decreased [Unknown]
  - Nasal congestion [Unknown]
  - Decreased appetite [Unknown]
  - Weight increased [Unknown]
  - Dysphonia [Not Recovered/Not Resolved]
  - Back pain [Recovered/Resolved]
  - Nasopharyngitis [Not Recovered/Not Resolved]
  - Diarrhoea [Not Recovered/Not Resolved]
  - Abdominal pain [Unknown]
  - Headache [Unknown]
  - Pyrexia [Not Recovered/Not Resolved]
  - Discouragement [Not Recovered/Not Resolved]
  - Malaise [Recovering/Resolving]
  - Respiratory disorder [Unknown]
  - Dysuria [Recovered/Resolved]
  - Chromaturia [Recovered/Resolved]
  - Productive cough [Not Recovered/Not Resolved]
  - Influenza [Not Recovered/Not Resolved]
  - Illness [Not Recovered/Not Resolved]
  - Insurance issue [Unknown]
  - Treatment noncompliance [Unknown]
  - Wrong dosage formulation [Unknown]
  - Product use in unapproved indication [Unknown]
  - Inappropriate schedule of product administration [Unknown]
  - Incorrect dosage administered [Unknown]
  - Product prescribing error [Unknown]
  - Product dose omission issue [Unknown]
  - Bone pain [Recovering/Resolving]
  - Asthenia [Recovering/Resolving]
  - Chills [Not Recovered/Not Resolved]
  - Cough [Not Recovered/Not Resolved]
  - Chest pain [Not Recovered/Not Resolved]

NARRATIVE: CASE EVENT DATE: 20160630
